FAERS Safety Report 9771016 (Version 1)
Quarter: 2013Q4

REPORT INFORMATION
  Report Type: Spontaneous
  Country: JP (occurrence: JP)
  Receive Date: 20131218
  Receipt Date: 20131218
  Transmission Date: 20140711
  Serious: Yes (Life-Threatening, Other)
  Sender: FDA-Public Use
  Company Number: JP-ASTRAZENECA-2013SE91696

PATIENT
  Sex: Male

DRUGS (3)
  1. SEROQUEL [Suspect]
     Indication: SUICIDE ATTEMPT
     Dosage: 21 TABLETS (2100 MG)
     Route: 048
     Dates: start: 20131210
  2. HYPNOTICS AND SEDATIVES [Concomitant]
     Indication: SUICIDE ATTEMPT
     Dates: start: 20131210
  3. ANTIANXIETICS [Concomitant]
     Indication: SUICIDE ATTEMPT
     Dates: start: 20131210

REACTIONS (4)
  - Suicide attempt [Unknown]
  - Intentional overdose [Unknown]
  - Somnolence [Unknown]
  - Dysarthria [Unknown]
